FAERS Safety Report 18049850 (Version 3)
Quarter: 2021Q1

REPORT INFORMATION
  Report Type: Spontaneous
  Country: JP (occurrence: JP)
  Receive Date: 20200721
  Receipt Date: 20210217
  Transmission Date: 20210419
  Serious: Yes (Death)
  Sender: FDA-Public Use
  Company Number: JP-CELGENEUS-JPN-20200704963

PATIENT
  Age: 69 Year
  Sex: Male
  Weight: 57.2 kg

DRUGS (5)
  1. GEMZAR [Concomitant]
     Active Substance: GEMCITABINE HYDROCHLORIDE
     Indication: PANCREATIC CARCINOMA METASTATIC
     Dosage: 1650 MILLIGRAM
     Route: 041
  2. LOXOPROFEN [Concomitant]
     Active Substance: LOXOPROFEN
     Indication: ABDOMINAL PAIN UPPER
     Dosage: 60 MILLIGRAM
     Route: 065
     Dates: start: 20200316, end: 20200530
  3. MIKELUNA OPHTHALMIC SOLUTION [Concomitant]
     Indication: GLAUCOMA
     Route: 047
     Dates: start: 20200323, end: 20200507
  4. NEXIUM [Concomitant]
     Active Substance: ESOMEPRAZOLE MAGNESIUM
     Indication: ABDOMINAL PAIN UPPER
     Dosage: 20 MILLIGRAM
     Route: 065
     Dates: start: 20200316, end: 20200609
  5. ABRAXANE [Suspect]
     Active Substance: PACLITAXEL
     Indication: PANCREATIC CARCINOMA METASTATIC
     Dosage: 203.75 MILLIGRAM
     Route: 041
     Dates: start: 20200409

REACTIONS (2)
  - COVID-19 [Fatal]
  - Hepatic failure [Fatal]

NARRATIVE: CASE EVENT DATE: 202004
